FAERS Safety Report 7394973-5 (Version None)
Quarter: 2011Q2

REPORT INFORMATION
  Report Type: 
  Country: None (occurrence: None)
  Receive Date: 20110405
  Receipt Date: 20110328
  Transmission Date: 20111010
  Serious: Yes (Other)
  Sender: FDA-Public Use
  Company Number: TR-ROCHE-767748

PATIENT

DRUGS (1)
  1. BEVACIZUMAB [Suspect]
     Dosage: DOSE; 0.05 ML, 1.25 MG, SINGLE DOSE
     Route: 031

REACTIONS (2)
  - CONJUNCTIVAL HAEMORRHAGE [None]
  - BLOOD PRESSURE INCREASED [None]
